FAERS Safety Report 10379674 (Version 1)
Quarter: 2014Q3

REPORT INFORMATION
  Report Type: Report from Study
  Country: NZ (occurrence: NZ)
  Receive Date: 20140808
  Receipt Date: 20140808
  Transmission Date: 20150326
  Serious: Yes (Hospitalization)
  Sender: FDA-Public Use
  Company Number: PHHY2014NZ096560

PATIENT
  Sex: Female

DRUGS (2)
  1. CLOZARIL [Suspect]
     Active Substance: CLOZAPINE
     Dosage: UKN
     Dates: start: 20120110
  2. CLOZARIL [Suspect]
     Active Substance: CLOZAPINE
     Dosage: UKN
     Dates: start: 20140805

REACTIONS (2)
  - Incorrect dose administered [Unknown]
  - Mental impairment [Unknown]
